FAERS Safety Report 8017524-0 (Version None)
Quarter: 2011Q4

REPORT INFORMATION
  Report Type: 
  Country: None (occurrence: None)
  Receive Date: 20111228
  Receipt Date: 20111228
  Transmission Date: 20120403
  Serious: No
  Sender: FDA-Public Use
  Company Number: None

PATIENT
  Sex: Female
  Weight: 60.782 kg

DRUGS (2)
  1. RIFAMPIN [Suspect]
     Indication: RETINAL DISORDER
     Dosage: 2 CAPS ONCE A DAY
     Dates: start: 20111115, end: 20111126
  2. RIFAMPIN [Suspect]
     Indication: RETINAL DISORDER
     Dosage: 2 CAPS ONCE A DAY
     Dates: start: 20111206

REACTIONS (7)
  - CHILLS [None]
  - PAIN [None]
  - BODY TEMPERATURE INCREASED [None]
  - DIARRHOEA [None]
  - VIRAL INFECTION [None]
  - RASH [None]
  - VOMITING [None]
